FAERS Safety Report 8044760-X (Version None)
Quarter: 2012Q1

REPORT INFORMATION
  Report Type: 
  Country: None (occurrence: None)
  Receive Date: 20120113
  Receipt Date: 20111229
  Transmission Date: 20120608
  Serious: Yes (Hospitalization)
  Sender: FDA-Public Use
  Company Number: SE-ROCHE-1026408

PATIENT

DRUGS (3)
  1. IRINOTECAN HCL [Suspect]
     Indication: COLORECTAL CANCER METASTATIC
     Dosage: UNKNOWN
     Route: 042
  2. XELODA [Suspect]
     Indication: COLORECTAL CANCER METASTATIC
     Route: 048
     Dates: start: 20111115, end: 20111220
  3. AVASTIN [Suspect]
     Indication: COLORECTAL CANCER METASTATIC
     Route: 042
     Dates: start: 20111115, end: 20111220

REACTIONS (4)
  - DEHYDRATION [None]
  - TRICUSPID VALVE STENOSIS [None]
  - GENERAL PHYSICAL HEALTH DETERIORATION [None]
  - MITRAL VALVE STENOSIS [None]
